FAERS Safety Report 8212741-9 (Version None)
Quarter: 2012Q1

REPORT INFORMATION
  Report Type: 
  Country: None (occurrence: None)
  Receive Date: 20120315
  Receipt Date: 20120307
  Transmission Date: 20120608
  Serious: Yes (Hospitalization, Disabling, Other)
  Sender: FDA-Public Use
  Company Number: US-MERCK-1110USA01313

PATIENT
  Age: 61 Year
  Sex: Female

DRUGS (2)
  1. FOSAMAX [Suspect]
     Indication: OSTEOPENIA
     Route: 048
     Dates: start: 19990101, end: 20040908
  2. FOSAMAX [Suspect]
     Route: 048
     Dates: end: 20011210

REACTIONS (19)
  - ANAEMIA POSTOPERATIVE [None]
  - FEMUR FRACTURE [None]
  - LOW TURNOVER OSTEOPATHY [None]
  - HYPERTENSION [None]
  - BLOOD CHOLESTEROL INCREASED [None]
  - BLOOD BLISTER [None]
  - PRURITUS [None]
  - OVARIAN DISORDER [None]
  - DENTAL CARIES [None]
  - GALLBLADDER DISORDER [None]
  - DRUG HYPERSENSITIVITY [None]
  - GASTROOESOPHAGEAL REFLUX DISEASE [None]
  - ECZEMA [None]
  - FALL [None]
  - RASH [None]
  - DERMATITIS [None]
  - ADVERSE EVENT [None]
  - BRONCHITIS [None]
  - URTICARIA [None]
